FAERS Safety Report 23353109 (Version 3)
Quarter: 2025Q2

REPORT INFORMATION
  Report Type: Spontaneous
  Country: IT (occurrence: IT)
  Receive Date: 20231230
  Receipt Date: 20250429
  Transmission Date: 20250716
  Serious: Yes (Death, Other)
  Sender: AMGEN
  Company Number: IT-AMGEN-ITASP2023230714

PATIENT

DRUGS (4)
  1. BLINCYTO [Suspect]
     Active Substance: BLINATUMOMAB
     Indication: B precursor type acute leukaemia
     Dosage: 28 MICROGRAM, QD [28 DAYS CONTINUOUS IV INFUSION] (MIN. 2 CYCLES, UP TO A MAX. OF 5 CYCLES)
     Route: 040
  2. SPRYCEL [Suspect]
     Active Substance: DASATINIB
     Indication: B precursor type acute leukaemia
     Dosage: 140 MILLIGRAM, QD (FOR A 12-WEEK INDUCTION TREATMENT)
     Route: 048
  3. METHOTREXATE SODIUM [Concomitant]
     Active Substance: METHOTREXATE SODIUM
     Indication: Prophylaxis
  4. METHYLPREDNISOLONE [Concomitant]
     Active Substance: METHYLPREDNISOLONE
     Indication: Prophylaxis

REACTIONS (37)
  - Death [Fatal]
  - Transplantation complication [Fatal]
  - Haemolytic anaemia [Fatal]
  - Venoocclusive disease [Fatal]
  - B precursor type acute leukaemia [Fatal]
  - Endocarditis [Fatal]
  - Pneumonia [Fatal]
  - Cytomegalovirus infection reactivation [Fatal]
  - Sepsis [Fatal]
  - Infection [Fatal]
  - Acute lymphocytic leukaemia recurrent [Unknown]
  - Gastroenteritis cryptosporidial [Unknown]
  - Graft versus host disease in gastrointestinal tract [Unknown]
  - Hyponatraemia [Unknown]
  - Colorectal adenoma [Unknown]
  - Pleural effusion [Unknown]
  - Cardiac failure [Recovered/Resolved]
  - Chylothorax [Unknown]
  - Pulmonary hypertension [Unknown]
  - Pericarditis [Recovered/Resolved]
  - Pneumonitis [Unknown]
  - Pericardial effusion [Recovered/Resolved]
  - Hypertransaminasaemia [Unknown]
  - Hypogammaglobulinaemia [Unknown]
  - Diarrhoea [Unknown]
  - Cytomegalovirus viraemia [Unknown]
  - Herpes zoster meningoencephalitis [Unknown]
  - Varicella zoster pneumonia [Unknown]
  - Pneumocystis jirovecii pneumonia [Unknown]
  - Pneumonia legionella [Unknown]
  - Anaemia [Unknown]
  - Thrombocytopenia [Unknown]
  - Oedema peripheral [Unknown]
  - Escherichia sepsis [Unknown]
  - Toxicity to various agents [Unknown]
  - Therapy non-responder [Unknown]
  - Gene mutation [Unknown]
